FAERS Safety Report 5121076-2 (Version None)
Quarter: 2006Q4

REPORT INFORMATION
  Report Type: 
  Country: None (occurrence: None)
  Receive Date: 20061002
  Receipt Date: 20060918
  Transmission Date: 20070319
  Serious: Yes (Hospitalization)
  Sender: FDA-Public Use
  Company Number: 2006113513

PATIENT
  Age: 29 Year
  Sex: Female

DRUGS (2)
  1. SERTRALINE [Suspect]
     Dosage: ORAL
     Route: 048
  2. ASPIRIN [Concomitant]

REACTIONS (2)
  - FATIGUE [None]
  - INCORRECT DOSE ADMINISTERED [None]
